FAERS Safety Report 22380055 (Version 1)
Quarter: 2023Q2

REPORT INFORMATION
  Report Type: Spontaneous
  Country: JP (occurrence: JP)
  Receive Date: 20230529
  Receipt Date: 20230529
  Transmission Date: 20230721
  Serious: Yes (Other)
  Sender: FDA-Public Use
  Company Number: JP-APIL-2315678US

PATIENT
  Sex: Female

DRUGS (3)
  1. ASENAPINE MALEATE [Suspect]
     Active Substance: ASENAPINE MALEATE
     Indication: Product used for unknown indication
     Dosage: 20 MG
     Route: 060
  2. PALIPERIDONE [Concomitant]
     Active Substance: PALIPERIDONE
     Dosage: 12 MG
  3. ARIPIPRAZOLE [Concomitant]
     Active Substance: ARIPIPRAZOLE
     Dosage: 24 MG

REACTIONS (1)
  - Breast cancer [Unknown]
